FAERS Safety Report 13724835 (Version 1)
Quarter: 2017Q3

REPORT INFORMATION
  Report Type: Spontaneous
  Country: KR (occurrence: KR)
  Receive Date: 20170706
  Receipt Date: 20170706
  Transmission Date: 20171127
  Serious: Yes (Other)
  Sender: FDA-Public Use
  Company Number: KR-BRISTOL-MYERS SQUIBB COMPANY-BMS-2017-059793

PATIENT
  Sex: Male

DRUGS (1)
  1. BARACLUDE [Suspect]
     Active Substance: ENTECAVIR
     Indication: CHRONIC HEPATITIS B
     Dosage: N/A
     Route: 065

REACTIONS (4)
  - Hepatic cancer [Unknown]
  - Therapeutic embolisation [Unknown]
  - Viral hepatitis carrier [Unknown]
  - Hepatectomy [Unknown]
